FAERS Safety Report 10763518 (Version 1)
Quarter: 2015Q1

REPORT INFORMATION
  Report Type: Spontaneous
  Country: US (occurrence: US)
  Receive Date: 20150204
  Receipt Date: 20150204
  Transmission Date: 20150721
  Serious: Yes (Other)
  Sender: FDA-Public Use
  Company Number: US-ABBVIE-15P-163-1339516-00

PATIENT
  Sex: Male

DRUGS (1)
  1. ANDROGEL [Suspect]
     Active Substance: TESTOSTERONE
     Indication: PRODUCT USED FOR UNKNOWN INDICATION
     Route: 062
     Dates: start: 201005, end: 201204

REACTIONS (11)
  - Economic problem [Unknown]
  - Injury [Unknown]
  - Emotional distress [Unknown]
  - Social problem [Unknown]
  - Anxiety [Unknown]
  - Anhedonia [Unknown]
  - Fear [Unknown]
  - Pain [Unknown]
  - Retinal vein occlusion [Unknown]
  - Physical disability [Unknown]
  - Impaired work ability [Unknown]

NARRATIVE: CASE EVENT DATE: 20120427
